FAERS Safety Report 8968148 (Version 2)
Quarter: 2012Q4

REPORT INFORMATION
  Report Type: 
  Country: CN (occurrence: CN)
  Receive Date: 20121217
  Receipt Date: 20121221
  Transmission Date: 20130627
  Serious: Yes (Hospitalization)
  Sender: FDA-Public Use
  Company Number: CN-PFIZER INC-2012317053

PATIENT
  Age: 44 Year
  Sex: Male

DRUGS (1)
  1. CEFOPERAZONE SODIUM [Suspect]
     Indication: LOBAR PNEUMONIA
     Dosage: 8 g per day

REACTIONS (1)
  - Paradoxical drug reaction [Recovered/Resolved]
